FAERS Safety Report 25326020 (Version 1)
Quarter: 2025Q2

REPORT INFORMATION
  Report Type: Report from Study
  Country: US (occurrence: US)
  Receive Date: 20250516
  Receipt Date: 20250516
  Transmission Date: 20250716
  Serious: Yes (Other)
  Sender: EISAI
  Company Number: US-Eisai-EC-2025-189392

PATIENT
  Age: 72 Year
  Sex: Female

DRUGS (5)
  1. LENVIMA [Suspect]
     Active Substance: LENVATINIB
     Indication: Endometrial cancer
     Dates: start: 20241219
  2. LENVIMA [Suspect]
     Active Substance: LENVATINIB
     Dates: start: 202503, end: 202503
  3. LENVIMA [Suspect]
     Active Substance: LENVATINIB
     Dates: start: 20250316
  4. KEYTRUDA [Concomitant]
     Active Substance: PEMBROLIZUMAB
     Indication: Endometrial cancer
  5. KEYTRUDA [Concomitant]
     Active Substance: PEMBROLIZUMAB

REACTIONS (3)
  - Pancreatitis [Unknown]
  - Blood potassium decreased [Unknown]
  - Autoimmune colitis [Unknown]

NARRATIVE: CASE EVENT DATE: 20250401
